FAERS Safety Report 6527325-8 (Version None)
Quarter: 2009Q4

REPORT INFORMATION
  Report Type: 
  Country: None (occurrence: None)
  Receive Date: 20091229
  Receipt Date: 20091214
  Transmission Date: 20100525
  Serious: Yes (Hospitalization, Other)
  Sender: FDA-Public Use
  Company Number: AUR-APL-2009-01566

PATIENT
  Age: 71 Year
  Sex: Male

DRUGS (2)
  1. CIPROFLOXACIN [Suspect]
     Indication: INFECTION
     Dosage: 400MG, BID, IV
     Route: 042
  2. CLINDAMYCIN [Suspect]
     Indication: INFECTION
     Dosage: 600MG, TID, IV
     Route: 042

REACTIONS (6)
  - BURNING SENSATION [None]
  - ERYTHEMA [None]
  - HAEMORRHAGE [None]
  - PRURITUS [None]
  - PURPURA [None]
  - VASCULITIS [None]
